FAERS Safety Report 5951056-6 (Version None)
Quarter: 2008Q4

REPORT INFORMATION
  Report Type: 
  Country: None (occurrence: None)
  Receive Date: 20081110
  Receipt Date: 20081023
  Transmission Date: 20090506
  Serious: Yes (Hospitalization)
  Sender: FDA-Public Use
  Company Number: 2008S1019166

PATIENT
  Age: 54 Year
  Sex: Male

DRUGS (5)
  1. CIPROFLOXACIN [Suspect]
     Indication: PROPHYLAXIS
     Dosage: 500 MG; TWICE A DAY ORAL
     Route: 048
     Dates: start: 20080701
  2. AZITHROMYCIN [Suspect]
     Indication: PROPHYLAXIS
     Dosage: 250 MG; ONCE ORAL
     Route: 048
     Dates: start: 20080701, end: 20080808
  3. FLUOXETINE [Concomitant]
  4. SERETIDE (SERETIDE /01420901/) [Concomitant]
  5. UNIPHYL [Concomitant]

REACTIONS (1)
  - JAUNDICE [None]
